FAERS Safety Report 8379190-4 (Version None)
Quarter: 2012Q1

REPORT INFORMATION
  Report Type: 
  Country: None (occurrence: None)
  Receive Date: 20120323
  Receipt Date: 20110315
  Transmission Date: 20120608
  Serious: Yes (Hospitalization)
  Sender: FDA-Public Use
  Company Number: 163-21880-11031994

PATIENT
  Age: 74 Year
  Sex: Female

DRUGS (3)
  1. REVLIMID [Suspect]
     Indication: MULTIPLE MYELOMA
     Dosage: 25 MG, 1 IN 1 D, PO 15-10MG, DAILY, PO 5 MG, X21, PO
     Route: 048
     Dates: start: 20100701, end: 20110101
  2. REVLIMID [Suspect]
     Indication: MULTIPLE MYELOMA
     Dosage: 25 MG, 1 IN 1 D, PO 15-10MG, DAILY, PO 5 MG, X21, PO
     Route: 048
     Dates: start: 20100331, end: 20100101
  3. REVLIMID [Suspect]
     Indication: MULTIPLE MYELOMA
     Dosage: 25 MG, 1 IN 1 D, PO 15-10MG, DAILY, PO 5 MG, X21, PO
     Route: 048
     Dates: start: 20110201

REACTIONS (1)
  - DISEASE PROGRESSION [None]
